FAERS Safety Report 9781537 (Version 2)
Quarter: 2014Q1

REPORT INFORMATION
  Report Type: Spontaneous
  Country: US (occurrence: US)
  Receive Date: 20131224
  Receipt Date: 20140305
  Transmission Date: 20141002
  Serious: No
  Sender: FDA-Public Use
  Company Number: US-GILEAD-2013-0090522

PATIENT
  Age: 70 Year
  Sex: Female

DRUGS (9)
  1. LETAIRIS [Suspect]
     Indication: PULMONARY ARTERIAL HYPERTENSION
     Dosage: 5 MG, QD
     Route: 065
     Dates: start: 20131112, end: 20131203
  2. ASPIRIN [Concomitant]
  3. JANUVIA [Concomitant]
  4. LIPITOR [Concomitant]
  5. METOPROLOL [Concomitant]
  6. GLYBURIDE [Concomitant]
  7. VIT D [Concomitant]
  8. ALBUTEROL                          /00139501/ [Concomitant]
  9. SPIRIVA [Concomitant]

REACTIONS (1)
  - Fluid retention [Recovered/Resolved]
